FAERS Safety Report 7511147-5 (Version None)
Quarter: 2011Q2

REPORT INFORMATION
  Report Type: 
  Country: None (occurrence: None)
  Receive Date: 20110531
  Receipt Date: 20110523
  Transmission Date: 20111010
  Serious: Yes (Death)
  Sender: FDA-Public Use
  Company Number: JP-JNJFOC-20110408449

PATIENT
  Age: 82 Year
  Sex: Female

DRUGS (8)
  1. FENTANYL-100 [Suspect]
     Route: 062
     Dates: start: 20110426
  2. CARVEDILOL [Concomitant]
     Route: 048
  3. INSULIN [Concomitant]
     Route: 065
  4. FENTANYL-100 [Suspect]
     Indication: PAIN
     Route: 062
  5. UNKNOWN MEDICATION [Concomitant]
     Route: 065
  6. ADALAT [Concomitant]
     Route: 048
  7. FENTANYL-100 [Suspect]
     Route: 062
     Dates: start: 20110405, end: 20110425
  8. PROCHLORPERAZINE [Concomitant]
     Route: 065

REACTIONS (2)
  - NAUSEA [None]
  - MYOCARDIAL INFARCTION [None]
